FAERS Safety Report 6641995-5 (Version None)
Quarter: 2010Q1

REPORT INFORMATION
  Report Type: 
  Country: None (occurrence: None)
  Receive Date: 20100316
  Receipt Date: 20100303
  Transmission Date: 20100710
  Serious: Yes (Hospitalization, Other)
  Sender: FDA-Public Use
  Company Number: 20108384

PATIENT
  Age: 53 Year
  Sex: Male

DRUGS (1)
  1. LIORESAL [Suspect]
     Indication: MUSCLE SPASTICITY
     Dosage: 1500 MCG, DAILY, INTRATHECAL
     Route: 037

REACTIONS (6)
  - BLOOD PRESSURE SYSTOLIC INCREASED [None]
  - IMPLANT SITE INFECTION [None]
  - INCISION SITE BLISTER [None]
  - INCISION SITE ERYTHEMA [None]
  - STAPHYLOCOCCAL INFECTION [None]
  - WOUND SECRETION [None]
